FAERS Safety Report 4336428-8 (Version None)
Quarter: 2004Q2

REPORT INFORMATION
  Report Type: 
  Country: None (occurrence: None)
  Receive Date: 20040407
  Receipt Date: 20040326
  Transmission Date: 20050107
  Serious: Yes (Other)
  Sender: FDA-Public Use
  Company Number: US-JNJFOC-20040306455

PATIENT
  Age: 55 Year
  Sex: Female
  Weight: 52.6173 kg

DRUGS (3)
  1. REMICADE [Suspect]
     Indication: CROHN'S DISEASE
     Dosage: 260 MG, INTRAVENOUS
     Route: 042
  2. IRON SUPPLEMENT (IRON) [Concomitant]
  3. PURINETHOL [Concomitant]

REACTIONS (1)
  - FACIAL PALSY [None]
